FAERS Safety Report 19486175 (Version 4)
Quarter: 2021Q3

REPORT INFORMATION
  Report Type: Spontaneous
  Country: US (occurrence: US)
  Receive Date: 20210702
  Receipt Date: 20210907
  Transmission Date: 20211014
  Serious: Yes (Other)
  Sender: FDA-Public Use
  Company Number: US-ENDO PHARMACEUTICALS INC-2021-010038

PATIENT
  Sex: Female

DRUGS (1)
  1. QWO [Suspect]
     Active Substance: COLLAGENASE CLOSTRIDIUM HISTOLYTICUM-AAES
     Indication: PEAU D^ORANGE
     Dosage: UNK UNKNOWN, UNKNOWN
     Route: 065
     Dates: start: 20210624

REACTIONS (5)
  - Syncope [Recovered/Resolved]
  - Drug ineffective [Unknown]
  - Hypersensitivity [Unknown]
  - Heart rate increased [Unknown]
  - Off label use [Unknown]

NARRATIVE: CASE EVENT DATE: 2021
